FAERS Safety Report 5403376-1 (Version None)
Quarter: 2007Q3

REPORT INFORMATION
  Report Type: 
  Country: None (occurrence: None)
  Receive Date: 20070730
  Receipt Date: 20070719
  Transmission Date: 20080115
  Serious: Yes (Hospitalization)
  Sender: FDA-Public Use
  Company Number: 230408K07CAN

PATIENT
  Sex: Female

DRUGS (3)
  1. REBIF [Suspect]
     Indication: MULTIPLE SCLEROSIS
     Dates: start: 20070601
  2. COTYLENOL [Concomitant]
  3. ANTIEPILEPTICS [Concomitant]

REACTIONS (7)
  - BURNING SENSATION [None]
  - CHEST DISCOMFORT [None]
  - CONDITION AGGRAVATED [None]
  - ERYTHEMA [None]
  - MULTIPLE SCLEROSIS [None]
  - RASH [None]
  - THROAT TIGHTNESS [None]
